FAERS Safety Report 15375977 (Version 3)
Quarter: 2018Q3

REPORT INFORMATION
  Report Type: Spontaneous
  Country: US (occurrence: US)
  Receive Date: 20180912
  Receipt Date: 20180918
  Transmission Date: 20181010
  Serious: Yes (Other)
  Sender: FDA-Public Use
  Company Number: US-PFIZER INC-2016445242

PATIENT
  Age: 68 Year
  Sex: Female
  Weight: 91 kg

DRUGS (1)
  1. XELJANZ [Suspect]
     Active Substance: TOFACITINIB CITRATE
     Indication: RHEUMATOID ARTHRITIS
     Dosage: 5 MG, 2X/DAY
     Route: 048
     Dates: end: 20180905

REACTIONS (6)
  - Breast cancer [Unknown]
  - Urinary tract infection [Not Recovered/Not Resolved]
  - Pneumonia [Unknown]
  - Back pain [Recovering/Resolving]
  - Urinary incontinence [Unknown]
  - Sepsis [Unknown]

NARRATIVE: CASE EVENT DATE: 2014
